FAERS Safety Report 16304509 (Version 1)
Quarter: 2019Q2

REPORT INFORMATION
  Report Type: Spontaneous
  Country: US (occurrence: US)
  Receive Date: 20190510
  Receipt Date: 20190510
  Transmission Date: 20190711
  Serious: Yes (Disabling)
  Sender: FDA-Public Use
  Company Number: None

PATIENT
  Age: 50 Year
  Sex: Female
  Weight: 65.25 kg

DRUGS (6)
  1. AIMOVIG [Suspect]
     Active Substance: ERENUMAB-AOOE
     Indication: MIGRAINE
     Dosage: ?          QUANTITY:1 INJECTION(S);OTHER ROUTE:INJECTED IN STOMACH?
     Dates: start: 20190226, end: 20190226
  2. CALCIUM [Concomitant]
     Active Substance: CALCIUM
  3. SINGULAIR [Concomitant]
     Active Substance: MONTELUKAST SODIUM
  4. LISONOPRIL [Concomitant]
  5. RIZATRIPTAN. [Concomitant]
     Active Substance: RIZATRIPTAN
  6. WOMEN^S MULTIVITAMIN [Concomitant]

REACTIONS (4)
  - Blood pressure increased [None]
  - Heart rate increased [None]
  - Weight increased [None]
  - Tinnitus [None]

NARRATIVE: CASE EVENT DATE: 20190401
